FAERS Safety Report 14376069 (Version 2)
Quarter: 2018Q3

REPORT INFORMATION
  Report Type: Spontaneous
  Country: US (occurrence: US)
  Receive Date: 20180111
  Receipt Date: 20180813
  Transmission Date: 20181010
  Serious: Yes (Death, Hospitalization)
  Sender: FDA-Public Use
  Company Number: US-PFIZER INC-2018011863

PATIENT
  Age: 81 Year
  Sex: Female
  Weight: 68.4 kg

DRUGS (2)
  1. XALKORI [Suspect]
     Active Substance: CRIZOTINIB
     Indication: LUNG NEOPLASM MALIGNANT
     Dosage: 250 MG, 2X/DAY
     Dates: start: 2017, end: 2017
  2. XALKORI [Suspect]
     Active Substance: CRIZOTINIB
     Dosage: 200 MG, UNK
     Dates: start: 2017, end: 201712

REACTIONS (8)
  - Central nervous system lesion [Unknown]
  - Hypersensitivity [Unknown]
  - Nausea [Unknown]
  - Constipation [Unknown]
  - Back disorder [Unknown]
  - Death [Fatal]
  - Infection [Unknown]
  - Fatigue [Unknown]

NARRATIVE: CASE EVENT DATE: 2017
